FAERS Safety Report 11929517 (Version 1)
Quarter: 2016Q1

REPORT INFORMATION
  Report Type: Spontaneous
  Country: US (occurrence: None)
  Receive Date: 20160119
  Receipt Date: 20160119
  Transmission Date: 20160526
  Serious: No
  Sender: FDA-Public Use
  Company Number: None

PATIENT
  Age: 36 Year
  Sex: Female
  Weight: 78.47 kg

DRUGS (6)
  1. WAL TUSSIN DM MAX COUGH AND CHEST CONGESTION [Suspect]
     Active Substance: DEXTROMETHORPHAN HYDROBROMIDE\GUAIFENESIN
     Indication: RESPIRATORY TRACT CONGESTION
     Route: 048
     Dates: start: 20160114, end: 20160115
  2. PREDNISONE. [Concomitant]
     Active Substance: PREDNISONE
  3. AZITHROMYCIN ANHYDROUS. [Concomitant]
     Active Substance: AZITHROMYCIN ANHYDROUS
  4. MULTIVITAMIN [Concomitant]
     Active Substance: VITAMINS
  5. WAL TUSSIN DM MAX COUGH AND CHEST CONGESTION [Suspect]
     Active Substance: DEXTROMETHORPHAN HYDROBROMIDE\GUAIFENESIN
     Indication: NASOPHARYNGITIS
     Route: 048
     Dates: start: 20160114, end: 20160115
  6. JOLIVETTE [Concomitant]
     Active Substance: NORETHINDRONE

REACTIONS (2)
  - Product packaging issue [None]
  - Incorrect dose administered [None]

NARRATIVE: CASE EVENT DATE: 20160114
